FAERS Safety Report 8607379 (Version 4)
Quarter: 2014Q1

REPORT INFORMATION
  Report Type: Spontaneous
  Country: US (occurrence: US)
  Receive Date: 20120611
  Receipt Date: 20140111
  Transmission Date: 20141002
  Serious: Yes (Hospitalization, Disabling, Other)
  Sender: FDA-Public Use
  Company Number: US-ASTRAZENECA-2012SE34976

PATIENT
  Age: 579 Month
  Sex: Male
  Weight: 84.4 kg

DRUGS (41)
  1. NEXIUM [Suspect]
     Indication: GASTROOESOPHAGEAL REFLUX DISEASE
     Dosage: DAILY
     Route: 048
     Dates: start: 2003, end: 2008
  2. NEXIUM [Suspect]
     Indication: GASTROOESOPHAGEAL REFLUX DISEASE
     Route: 048
     Dates: start: 2005, end: 2009
  3. PRILOSEC OTC [Suspect]
     Route: 048
  4. ROLAIDS [Concomitant]
     Dates: start: 1972, end: 1975
  5. TUMS [Concomitant]
     Dosage: AS NEEDED
     Dates: start: 1972, end: 1975
  6. RANITIDINE [Concomitant]
  7. PEPTO-BISMOL [Concomitant]
     Dosage: AS NEEEDED
     Dates: start: 1972, end: 1975
  8. NARCOTICS [Concomitant]
  9. NERVE PAIN BLOCKERS [Concomitant]
  10. LISINOPRIL [Concomitant]
     Indication: HYPERTENSION
  11. OMEPRAZOLE [Concomitant]
     Indication: GASTROOESOPHAGEAL REFLUX DISEASE
  12. GABAPENTIN [Concomitant]
     Indication: BACK PAIN
  13. GABAPENTIN [Concomitant]
     Indication: NECK PAIN
  14. OXYCODONE [Concomitant]
     Indication: NECK PAIN
  15. OXYCODONE [Concomitant]
     Indication: BACK PAIN
  16. MORPHINE SULFATE [Concomitant]
     Indication: NECK PAIN
  17. MORPHINE SULFATE [Concomitant]
     Indication: BACK PAIN
  18. HYDROCODONE [Concomitant]
     Indication: NECK PAIN
  19. HYDROCODONE [Concomitant]
     Indication: BACK PAIN
  20. HYDROCODONE [Concomitant]
     Indication: NECK PAIN
  21. HYDROCODONE [Concomitant]
     Indication: BACK PAIN
  22. BACLOFEN [Concomitant]
     Indication: MUSCLE RELAXANT THERAPY
  23. FINASTERIDE [Concomitant]
     Indication: PROSTATE INDURATION
  24. TERAZOSIN [Concomitant]
     Indication: PROSTATE INDURATION
  25. LEVOTHYROXINE [Concomitant]
     Indication: THYROID DISORDER
  26. MULTIVITAMIN [Concomitant]
     Indication: VITAMIN SUPPLEMENTATION
  27. VITAMIN D3 [Concomitant]
     Indication: VITAMIN D DEFICIENCY
  28. FISH OIL [Concomitant]
     Indication: CARDIOVASCULAR DISORDER
  29. ASPIRIN [Concomitant]
  30. ATENOLOL [Concomitant]
     Route: 048
     Dates: start: 20110307
  31. HYDROXYZINE PAMOATE [Concomitant]
     Indication: ANXIETY
     Route: 048
     Dates: start: 20110307
  32. HYDROXYZINE PAMOATE [Concomitant]
     Indication: SLEEP DISORDER
     Route: 048
     Dates: start: 20110307
  33. SERTRALINE HCL [Concomitant]
     Indication: AFFECTIVE DISORDER
     Route: 048
     Dates: start: 20110307
  34. SERTRALINE HCL [Concomitant]
     Indication: DEPRESSION
     Route: 048
     Dates: start: 20110307
  35. SERTRALINE HCL [Concomitant]
     Indication: ANXIETY
     Route: 048
     Dates: start: 20110307
  36. HYDROCHLOROTHIAZIDE [Concomitant]
     Indication: BLOOD PRESSURE
     Route: 048
     Dates: start: 200905
  37. METHIMAZOLE [Concomitant]
     Route: 048
     Dates: start: 200905
  38. METOPROLOL TARTRATE [Concomitant]
     Route: 048
     Dates: start: 200905
  39. PROPYLTHIOURACIL [Concomitant]
     Route: 048
     Dates: start: 200905
  40. WARFARIN [Concomitant]
     Dosage: 5 MG ONE TAB DAILY EXCEPT TAKE ONE AND ONE HALF TABLETS ON MONDAY AND FRIDAY
     Route: 048
     Dates: start: 20090107
  41. DILTIAZEM [Concomitant]
     Route: 048
     Dates: start: 20091203

REACTIONS (26)
  - Cervical radiculopathy [Unknown]
  - Cervical spinal stenosis [Unknown]
  - Back pain [Unknown]
  - Thyroid disorder [Unknown]
  - Exostosis [Unknown]
  - Nerve injury [Unknown]
  - Intervertebral disc protrusion [Unknown]
  - Rash [Unknown]
  - Osteoporosis [Unknown]
  - Bone density decreased [Unknown]
  - Aortic arteriosclerosis [Unknown]
  - Multiple fractures [Unknown]
  - Hand fracture [Unknown]
  - Scoliosis [Unknown]
  - Carpal tunnel syndrome [Unknown]
  - Bone disorder [Unknown]
  - Bone pain [Unknown]
  - Rheumatoid arthritis [Unknown]
  - Atrophy [Unknown]
  - Calcium deficiency [Unknown]
  - Arthritis [Unknown]
  - Hyperthyroidism [Unknown]
  - Vitamin D deficiency [Unknown]
  - Intervertebral disc degeneration [Unknown]
  - Spinal osteoarthritis [Unknown]
  - Depression [Unknown]
